APPROVED DRUG PRODUCT: HYDROCORTISONE
Active Ingredient: HYDROCORTISONE
Strength: 1%
Dosage Form/Route: OINTMENT;TOPICAL
Application: A087796 | Product #001
Applicant: ACTAVIS MID ATLANTIC LLC
Approved: Oct 13, 1982 | RLD: No | RS: No | Type: DISCN